FAERS Safety Report 4842395-0 (Version None)
Quarter: 2005Q4

REPORT INFORMATION
  Report Type: 
  Country: None (occurrence: None)
  Receive Date: 20051201
  Receipt Date: 20051107
  Transmission Date: 20060501
  Serious: Yes (Other)
  Sender: FDA-Public Use
  Company Number: JP-BRISTOL-MYERS SQUIBB COMPANY-13173976

PATIENT
  Age: 71 Year
  Sex: Female

DRUGS (2)
  1. PARAPLATIN [Suspect]
     Indication: OVARIAN CANCER
     Route: 041
     Dates: start: 20040210, end: 20040210
  2. TAXOTERE [Concomitant]
     Indication: OVARIAN CANCER
     Route: 041
     Dates: start: 20040210, end: 20040210

REACTIONS (2)
  - HYPERSENSITIVITY [None]
  - SHOCK [None]
